FAERS Safety Report 6493541-7 (Version None)
Quarter: 2009Q4

REPORT INFORMATION
  Report Type: 
  Country: None (occurrence: None)
  Receive Date: 20091209
  Receipt Date: 20091204
  Transmission Date: 20100525
  Serious: Yes (Disabling)
  Sender: FDA-Public Use
  Company Number: GRT 2009-14050

PATIENT
  Age: 54 Year
  Sex: Female
  Weight: 75 kg

DRUGS (5)
  1. LIDOCAINE [Suspect]
     Indication: BACK PAIN
     Dosage: 1 PATCH
     Route: 062
     Dates: start: 20090924, end: 20091022
  2. EPROSARTAN [Concomitant]
  3. BENDROFLUMETHIAZIDE [Concomitant]
  4. AMITRIPTYLINE HYDROCHLORIDE [Concomitant]
  5. VALPROATE SODIUM [Concomitant]

REACTIONS (2)
  - GLOMERULONEPHRITIS [None]
  - NEPHRITIS [None]
